FAERS Safety Report 19630814 (Version 1)
Quarter: 2021Q3

REPORT INFORMATION
  Report Type: Spontaneous
  Country: US (occurrence: US)
  Receive Date: 20210728
  Receipt Date: 20210728
  Transmission Date: 20211014
  Serious: No
  Sender: FDA-Public Use
  Company Number: US-SA-2021SA247347

PATIENT
  Age: 58 Year
  Sex: Female

DRUGS (2)
  1. MULTIVITAMIN [ASCORBIC ACID;CALCIUM PANTOTHENATE;CYANOCOBALAMIN;NICOTI [Concomitant]
  2. DUPIXENT [Suspect]
     Active Substance: DUPILUMAB
     Indication: DERMATITIS ATOPIC
     Dosage: DOSE: 300MG/ 2ML
     Route: 058
     Dates: start: 20200829

REACTIONS (1)
  - Fatigue [Not Recovered/Not Resolved]
